FAERS Safety Report 13335285 (Version 1)
Quarter: 2017Q1

REPORT INFORMATION
  Report Type: Spontaneous
  Country: US (occurrence: US)
  Receive Date: 20170314
  Receipt Date: 20170314
  Transmission Date: 20170428
  Serious: No
  Sender: FDA-Public Use
  Company Number: US-GALDERMA-US16004083

PATIENT
  Age: 22 Year
  Sex: Female

DRUGS (3)
  1. TRI-LUMA [Suspect]
     Active Substance: FLUOCINOLONE ACETONIDE\HYDROQUINONE\TRETINOIN
     Indication: SKIN HYPERPIGMENTATION
     Route: 061
     Dates: start: 20160607, end: 20160609
  2. SULPHUR FACE WASH [Concomitant]
  3. ALLEGRA [Concomitant]
     Active Substance: FEXOFENADINE HYDROCHLORIDE
     Indication: SEASONAL ALLERGY

REACTIONS (9)
  - Skin irritation [Recovered/Resolved]
  - Erythema [Recovered/Resolved]
  - Eye swelling [Recovering/Resolving]
  - Skin exfoliation [Recovering/Resolving]
  - Skin burning sensation [Recovered/Resolved]
  - Intentional overdose [Recovered/Resolved]
  - Dry skin [Recovering/Resolving]
  - Inappropriate schedule of drug administration [Recovering/Resolving]
  - Intentional product misuse [Recovered/Resolved]

NARRATIVE: CASE EVENT DATE: 20160608
